FAERS Safety Report 4704295-6 (Version None)
Quarter: 2005Q2

REPORT INFORMATION
  Report Type: 
  Country: None (occurrence: None)
  Receive Date: 20050630
  Receipt Date: 20050621
  Transmission Date: 20051028
  Serious: Yes (Hospitalization)
  Sender: FDA-Public Use
  Company Number: 2005UW09467

PATIENT
  Age: 14 Year
  Sex: Male

DRUGS (1)
  1. SEROQUEL [Suspect]
     Dosage: 100 AND 200 MG
     Route: 048

REACTIONS (3)
  - BRADYKINESIA [None]
  - DISORIENTATION [None]
  - EXTRAPYRAMIDAL DISORDER [None]
